FAERS Safety Report 19066036 (Version 1)
Quarter: 2021Q1

REPORT INFORMATION
  Report Type: Spontaneous
  Country: US (occurrence: US)
  Receive Date: 20210327
  Receipt Date: 20210327
  Transmission Date: 20210420
  Serious: No
  Sender: FDA-Public Use
  Company Number: US-009507513-2103USA003361

PATIENT
  Age: 63 Year
  Sex: Male

DRUGS (1)
  1. TEMODAR [Suspect]
     Active Substance: TEMOZOLOMIDE
     Indication: ANGIOSARCOMA METASTATIC
     Dosage: 150 MILLIGRAM/SQ. METER. ON DAYS 1?5, WITH 28?DAY CYCLE

REACTIONS (1)
  - Off label use [Unknown]
